FAERS Safety Report 5481886-9 (Version None)
Quarter: 2007Q4

REPORT INFORMATION
  Report Type: 
  Country: None (occurrence: None)
  Receive Date: 20071010
  Receipt Date: 20071002
  Transmission Date: 20080405
  Serious: Yes (Hospitalization)
  Sender: FDA-Public Use
  Company Number: US-GENENTECH-248789

PATIENT
  Sex: Female

DRUGS (10)
  1. BEVACIZUMAB [Suspect]
     Indication: BREAST CANCER METASTATIC
     Dosage: 1070 MG, UNK
     Route: 042
     Dates: start: 20070504
  2. ABRAXANE [Suspect]
     Indication: BREAST CANCER METASTATIC
     Dosage: 260 MG, UNK
     Route: 042
     Dates: start: 20070504
  3. ABRAXANE [Suspect]
     Dosage: 180 MG, UNK
  4. MOTRIN [Concomitant]
     Indication: PAIN
     Dosage: 2 TABLET, UNK
     Route: 048
     Dates: start: 19980101
  5. ASPIRIN [Concomitant]
     Indication: PROPHYLAXIS
     Dosage: 81 MG, UNK
     Route: 048
     Dates: start: 20040101
  6. PEPCID [Concomitant]
     Indication: DYSPEPSIA
     Dosage: 20 MG, UNK
     Route: 048
     Dates: start: 20070518
  7. PREPARATION H [Concomitant]
     Indication: HAEMORRHOIDS
     Route: 061
     Dates: start: 20070601
  8. LISINOPRIL [Concomitant]
     Indication: HYPERTENSION
     Dosage: 10 MG, UNK
     Route: 048
     Dates: start: 20040101
  9. CIPRO [Concomitant]
     Indication: DIVERTICULITIS
     Dosage: 500 MG, UNK
     Route: 048
     Dates: start: 20070806
  10. FLAGYL [Concomitant]
     Indication: DIVERTICULITIS
     Dosage: 50 MG, UNK
     Route: 048
     Dates: start: 20070806

REACTIONS (1)
  - GASTRIC ULCER [None]
